FAERS Safety Report 4600239-6 (Version None)
Quarter: 2005Q1

REPORT INFORMATION
  Report Type: 
  Country: None (occurrence: None)
  Receive Date: 20050307
  Receipt Date: 20050128
  Transmission Date: 20050727
  Serious: Yes (Other)
  Sender: FDA-Public Use
  Company Number: US-GLAXOSMITHKLINE-A0546067A

PATIENT
  Age: 82 Year
  Sex: Male
  Weight: 91.4 kg

DRUGS (4)
  1. AVANDIA [Suspect]
     Dosage: 8MG PER DAY
     Route: 048
     Dates: start: 20030811, end: 20041208
  2. GLUCOTROL XL [Concomitant]
     Indication: DRUG USE FOR UNKNOWN INDICATION
     Dosage: 10MG TWICE PER DAY
     Route: 048
  3. LISINOPRIL [Concomitant]
     Indication: DRUG USE FOR UNKNOWN INDICATION
     Dosage: 20MG PER DAY
     Route: 048
  4. LIPITOR [Concomitant]
     Indication: DRUG USE FOR UNKNOWN INDICATION
     Dosage: 20MG PER DAY
     Route: 048

REACTIONS (6)
  - CARDIAC FAILURE CONGESTIVE [None]
  - CHEST DISCOMFORT [None]
  - DYSPNOEA [None]
  - FATIGUE [None]
  - OEDEMA PERIPHERAL [None]
  - WEIGHT INCREASED [None]
